FAERS Safety Report 7120873-1 (Version None)
Quarter: 2010Q4

REPORT INFORMATION
  Report Type: 
  Country: None (occurrence: None)
  Receive Date: 20101124
  Receipt Date: 20091121
  Transmission Date: 20110411
  Serious: Yes (Other)
  Sender: FDA-Public Use
  Company Number: US-PFIZER INC-2009280120

PATIENT
  Sex: Male
  Weight: 102.4 kg

DRUGS (6)
  1. TIKOSYN [Suspect]
     Indication: ATRIAL FIBRILLATION
     Dosage: FREQUENCY: 2X/DAY,
  2. SPIRONOLACTONE [Concomitant]
  3. LASIX [Concomitant]
  4. POTASSIUM CHLORIDE [Concomitant]
  5. VASOTEC [Concomitant]
  6. WARFARIN [Concomitant]

REACTIONS (1)
  - ATRIAL FIBRILLATION [None]
